FAERS Safety Report 12879606 (Version 1)
Quarter: 2016Q4

REPORT INFORMATION
  Report Type: Spontaneous
  Country: US (occurrence: US)
  Receive Date: 20161021
  Receipt Date: 20161021
  Transmission Date: 20170207
  Serious: No
  Sender: FDA-Public Use
  Company Number: None

PATIENT
  Age: 23 Year
  Sex: Female

DRUGS (1)
  1. MAKENA [Suspect]
     Active Substance: HYDROXYPROGESTERONE CAPROATE
     Indication: HIGH RISK PREGNANCY
     Dosage: 250MG (1ML)  1XPER WEEK
     Route: 030
     Dates: start: 20160715, end: 20161004

REACTIONS (1)
  - Fungal infection [None]

NARRATIVE: CASE EVENT DATE: 20160901
